FAERS Safety Report 16765941 (Version 1)
Quarter: 2019Q3

REPORT INFORMATION
  Report Type: Spontaneous
  Country: SE (occurrence: SE)
  Receive Date: 20190903
  Receipt Date: 20190903
  Transmission Date: 20191005
  Serious: Yes (Hospitalization)
  Sender: FDA-Public Use
  Company Number: SE-ACCORD-153486

PATIENT
  Age: 21 Year
  Sex: Female

DRUGS (3)
  1. BUSPIRONE [Suspect]
     Active Substance: BUSPIRONE HYDROCHLORIDE
     Indication: PRODUCT USED FOR UNKNOWN INDICATION
     Route: 048
     Dates: start: 20190424, end: 20190424
  2. LERGIGAN (PROMETHAZINE) [Suspect]
     Active Substance: PROMETHAZINE HYDROCHLORIDE
     Indication: PRODUCT USED FOR UNKNOWN INDICATION
     Dosage: 16 ST
     Route: 048
     Dates: start: 20190424, end: 20190424
  3. THERALEN [Suspect]
     Active Substance: TRIMEPRAZINE
     Indication: PRODUCT USED FOR UNKNOWN INDICATION
     Route: 048
     Dates: start: 20190424, end: 20190424

REACTIONS (6)
  - Respiratory rate increased [Unknown]
  - Hallucination [Unknown]
  - Intentional self-injury [Unknown]
  - Intentional overdose [Unknown]
  - Akathisia [Unknown]
  - Tachycardia [Unknown]

NARRATIVE: CASE EVENT DATE: 20190424
